FAERS Safety Report 12980579 (Version 1)
Quarter: 2016Q4

REPORT INFORMATION
  Report Type: Spontaneous
  Country: US (occurrence: US)
  Receive Date: 20161128
  Receipt Date: 20161128
  Transmission Date: 20170207
  Serious: Yes (Other)
  Sender: FDA-Public Use
  Company Number: US-SA-2016SA214322

PATIENT
  Age: 15 Year
  Sex: Male

DRUGS (10)
  1. CYCLOPHOSPHAMIDE. [Suspect]
     Active Substance: CYCLOPHOSPHAMIDE
     Indication: BONE MARROW CONDITIONING REGIMEN
     Route: 065
  2. ASPARAGINASE [Concomitant]
     Active Substance: ASPARAGINASE
  3. CYTARABINE. [Concomitant]
     Active Substance: CYTARABINE
  4. VINCRISTINE [Concomitant]
     Active Substance: VINCRISTINE
  5. ALEMTUZUMAB [Suspect]
     Active Substance: ALEMTUZUMAB
     Indication: BONE MARROW CONDITIONING REGIMEN
     Route: 065
  6. DAUNORUBICIN [Concomitant]
     Active Substance: DAUNORUBICIN
  7. METHOTREXATE. [Concomitant]
     Active Substance: METHOTREXATE
  8. ETOPOSIDE. [Concomitant]
     Active Substance: ETOPOSIDE
  9. ETOPOSIDE. [Suspect]
     Active Substance: ETOPOSIDE
     Indication: BONE MARROW CONDITIONING REGIMEN
     Route: 065
  10. DEXAMETHASONE. [Concomitant]
     Active Substance: DEXAMETHASONE

REACTIONS (3)
  - Neuralgia [Recovered/Resolved]
  - Chronic kidney disease [Recovered/Resolved]
  - Pneumonia cytomegaloviral [Recovered/Resolved]
